FAERS Safety Report 6129485-X (Version None)
Quarter: 2009Q1

REPORT INFORMATION
  Report Type: 
  Country: None (occurrence: None)
  Receive Date: 20090324
  Receipt Date: 20090316
  Transmission Date: 20090719
  Serious: Yes (Other)
  Sender: FDA-Public Use
  Company Number: US-BAYER-200915650NA

PATIENT
  Age: 58 Year
  Sex: Male
  Weight: 82 kg

DRUGS (1)
  1. ULTRAVIST 370 [Suspect]
     Indication: BACK PAIN
     Dosage: TOTAL DAILY DOSE: 100 ML  UNIT DOSE: 100 ML
     Route: 042
     Dates: start: 20081212, end: 20081212

REACTIONS (5)
  - NASAL CONGESTION [None]
  - PHARYNGEAL OEDEMA [None]
  - PRURITUS [None]
  - SNEEZING [None]
  - URTICARIA [None]
